FAERS Safety Report 6200900-6 (Version None)
Quarter: 2009Q2

REPORT INFORMATION
  Report Type: 
  Country: None (occurrence: None)
  Receive Date: 20090523
  Receipt Date: 20081030
  Transmission Date: 20091009
  Serious: No
  Sender: FDA-Public Use
  Company Number: US-ALEXION-A200800320

PATIENT
  Sex: Female

DRUGS (9)
  1. SOLIRIS [Suspect]
     Dosage: 600 MG, QWK
     Route: 042
     Dates: start: 20070628, end: 20070718
  2. SOLIRIS [Suspect]
     Dosage: 900 MG, BIWEEKLY
     Route: 042
     Dates: start: 20070725
  3. SYNTHROID [Concomitant]
     Indication: HYPOTHYROIDISM
     Dosage: .1 MG, QD
     Route: 048
  4. LIPITOR [Concomitant]
     Dosage: 20 MG, QD
     Route: 048
  5. METOPROLOL SUCCINATE [Concomitant]
     Indication: HYPERTENSION
     Dosage: 50 MG, BID
     Route: 048
  6. NEXIUM [Concomitant]
     Dosage: 40 MG, QD
     Route: 048
  7. ASPIRIN [Concomitant]
     Dosage: 81 MG, QD
     Route: 048
  8. FOLIC ACID [Concomitant]
     Indication: PAROXYSMAL NOCTURNAL HAEMOGLOBINURIA
     Dosage: UNK, QD
     Route: 048
  9. PREDNISONE [Concomitant]
     Dosage: .5 MG, QD
     Route: 048

REACTIONS (1)
  - BACK PAIN [None]
